FAERS Safety Report 9822791 (Version 1)
Quarter: 2014Q1

REPORT INFORMATION
  Report Type: Spontaneous
  Country: IT (occurrence: IT)
  Receive Date: 20140116
  Receipt Date: 20140116
  Transmission Date: 20141002
  Serious: Yes (Other)
  Sender: FDA-Public Use
  Company Number: IT-TAKEDA-2014TUS000199

PATIENT
  Sex: 0

DRUGS (8)
  1. FEBUXOSTAT [Suspect]
     Indication: HYPERURICAEMIA
     Dosage: 80 MG
     Dates: start: 20131209, end: 20131229
  2. LASIX                              /00032601/ [Concomitant]
     Dosage: 25 MG, TID
  3. ZESTRIL [Concomitant]
     Dosage: 20 MG, QD
  4. TICLOPIDIN [Concomitant]
     Dosage: 250 MG, BID
  5. MEDROL                             /00049601/ [Concomitant]
     Dosage: 8 MG, QD
  6. ALIFLUS [Concomitant]
     Dosage: AS REQUIRED
  7. FOSTER                             /06206901/ [Concomitant]
     Dosage: AS REQUIRED
  8. BENTELAN [Concomitant]
     Dosage: AS REQUIRED

REACTIONS (5)
  - Pain [Not Recovered/Not Resolved]
  - Gait disturbance [Not Recovered/Not Resolved]
  - Stomatitis [Not Recovered/Not Resolved]
  - Hot flush [Not Recovered/Not Resolved]
  - Dyspnoea [Not Recovered/Not Resolved]
